FAERS Safety Report 25741317 (Version 2)
Quarter: 2025Q3

REPORT INFORMATION
  Report Type: Report from Study
  Country: EG (occurrence: EG)
  Receive Date: 20250829
  Receipt Date: 20250908
  Transmission Date: 20251020
  Serious: No
  Sender: NOVARTIS
  Company Number: EG-002147023-NVSC2025EG018384

PATIENT
  Age: 19 Year
  Sex: Female
  Weight: 75 kg

DRUGS (1)
  1. GILENYA [Suspect]
     Active Substance: FINGOLIMOD HYDROCHLORIDE
     Indication: Multiple sclerosis
     Dosage: 0.5 MG, QD (ONE CAPSULE ONCE DAILY)
     Route: 048
     Dates: start: 20240601

REACTIONS (9)
  - Vomiting [Recovering/Resolving]
  - Constipation [Recovering/Resolving]
  - Rash [Recovered/Resolved]
  - Pruritus [Recovered/Resolved]
  - Product dose omission issue [Unknown]
  - Dysstasia [Unknown]
  - Arthralgia [Recovered/Resolved]
  - Back pain [Recovered/Resolved]
  - Pain [Recovered/Resolved]

NARRATIVE: CASE EVENT DATE: 20240601
